FAERS Safety Report 4286068-4 (Version None)
Quarter: 2004Q1

REPORT INFORMATION
  Report Type: 
  Country: None (occurrence: None)
  Receive Date: 20040202
  Receipt Date: 20040119
  Transmission Date: 20041129
  Serious: Yes (Hospitalization, Other)
  Sender: FDA-Public Use
  Company Number: 2004003670

PATIENT
  Age: 72 Year
  Sex: Male

DRUGS (2)
  1. NORVASC [Suspect]
     Indication: HYPERTENSION
     Dosage: ORAL
     Route: 048
     Dates: start: 20031225, end: 20031230
  2. CARDENALIN (DOXAZOSIN) [Suspect]
     Indication: HYPERTENSION
     Dosage: ORAL
     Route: 048
     Dates: start: 20031225, end: 20031230

REACTIONS (3)
  - ATRIOVENTRICULAR BLOCK SECOND DEGREE [None]
  - FALL [None]
  - LOSS OF CONSCIOUSNESS [None]
